FAERS Safety Report 6678022-X (Version None)
Quarter: 2010Q2

REPORT INFORMATION
  Report Type: 
  Country: None (occurrence: None)
  Receive Date: 20100412
  Receipt Date: 20100310
  Transmission Date: 20101027
  Serious: No
  Sender: FDA-Public Use
  Company Number: US-BAYER-201013082BCC

PATIENT
  Age: 73 Year
  Sex: Female
  Weight: 65 kg

DRUGS (4)
  1. ALEVE (CAPLET) [Suspect]
     Indication: ARTHRALGIA
     Dosage: TOTAL DAILY DOSE: 220 MG  UNIT DOSE: 220 MG
     Route: 048
     Dates: start: 20100201, end: 20100201
  2. IBUPROFEN (ADVIL) [Suspect]
     Indication: DRUG USE FOR UNKNOWN INDICATION
     Dosage: TOOK ADVIL AND ALEVE ON THE SAME DAY
     Route: 065
  3. HIGH BLOOD PRESSURE MEDICATION [Concomitant]
     Indication: HYPERTENSION
     Route: 065
  4. BREAST CANCER MEDICATION [Concomitant]
     Indication: BREAST CANCER
     Route: 065

REACTIONS (1)
  - DIARRHOEA [None]
